FAERS Safety Report 21318583 (Version 2)
Quarter: 2025Q1

REPORT INFORMATION
  Report Type: Spontaneous
  Country: US (occurrence: US)
  Receive Date: 20220911
  Receipt Date: 20250211
  Transmission Date: 20250409
  Serious: No
  Sender: SANOFI AVENTIS
  Company Number: US-SA-SAC20220830000497

PATIENT
  Age: 14 Year
  Sex: Female
  Weight: 47.1 kg

DRUGS (4)
  1. DUPIXENT [Suspect]
     Active Substance: DUPILUMAB
     Indication: Dermatitis allergic
     Dosage: 200 MG, QOW
     Route: 058
     Dates: start: 2021
  2. LORATADINE [Concomitant]
     Active Substance: LORATADINE
  3. VITAMINS [Concomitant]
     Active Substance: VITAMINS
  4. CLOBETASOL [Concomitant]
     Active Substance: CLOBETASOL

REACTIONS (5)
  - Dry skin [Unknown]
  - Pain [Recovering/Resolving]
  - Skin exfoliation [Unknown]
  - Erythema [Recovering/Resolving]
  - Product use in unapproved indication [Unknown]

NARRATIVE: CASE EVENT DATE: 20210101
